FAERS Safety Report 6582934-5 (Version None)
Quarter: 2010Q1

REPORT INFORMATION
  Report Type: 
  Country: None (occurrence: None)
  Receive Date: 20100204
  Receipt Date: 20100120
  Transmission Date: 20100710
  Serious: Yes (Hospitalization, Other)
  Sender: FDA-Public Use
  Company Number: AUR-APL-2010-00196

PATIENT
  Age: 38 Year
  Sex: Female

DRUGS (3)
  1. LAMOTRIGINE [Suspect]
     Indication: DEPRESSION
     Dosage: 100MG - DAILY - ORAL
     Route: 048
  2. OLANZAPINE [Concomitant]
  3. CITALOPRAM HYDROBROMIDE [Concomitant]

REACTIONS (11)
  - ANHEDONIA [None]
  - ASTHENIA [None]
  - DEPRESSED MOOD [None]
  - DISTRACTIBILITY [None]
  - FEAR [None]
  - FEELINGS OF WORTHLESSNESS [None]
  - HYPERSOMNIA [None]
  - HYPOMANIA [None]
  - OBSESSIVE THOUGHTS [None]
  - SELF ESTEEM DECREASED [None]
  - SUICIDAL IDEATION [None]
